FAERS Safety Report 13966179 (Version 1)
Quarter: 2017Q3

REPORT INFORMATION
  Report Type: Report from Study
  Country: MX (occurrence: MX)
  Receive Date: 20170913
  Receipt Date: 20170913
  Transmission Date: 20171128
  Serious: Yes (Life-Threatening, Other)
  Sender: FDA-Public Use
  Company Number: MX-BAYER-2016-045822

PATIENT
  Sex: Male
  Weight: 11.8 kg

DRUGS (2)
  1. ANTIHEMOPHILIC FACTOR VIII (RECOMBINANT), SUCROSE FORMULATED [Suspect]
     Active Substance: ANTIHEMOPHILIC FACTOR, HUMAN RECOMBINANT
     Indication: FACTOR VIII DEFICIENCY
     Dosage: 250 MG, UNK
     Route: 042
     Dates: start: 20160126
  2. ANTIHEMOPHILIC FACTOR VIII (RECOMBINANT), SUCROSE FORMULATED [Suspect]
     Active Substance: ANTIHEMOPHILIC FACTOR, HUMAN RECOMBINANT
     Indication: FACTOR VIII DEFICIENCY
     Dosage: 250 MG, LAST DOSE ADMINISTERED
     Route: 042
     Dates: start: 20160310, end: 20160310

REACTIONS (1)
  - Anti factor VIII antibody positive [Recovering/Resolving]

NARRATIVE: CASE EVENT DATE: 20160223
